FAERS Safety Report 8238337-0 (Version None)
Quarter: 2012Q1

REPORT INFORMATION
  Report Type: 
  Country: None (occurrence: None)
  Receive Date: 20120327
  Receipt Date: 20120312
  Transmission Date: 20120608
  Serious: Yes (Hospitalization, Other)
  Sender: FDA-Public Use
  Company Number: US-ROCHE-1022837

PATIENT
  Sex: Female
  Weight: 60.382 kg

DRUGS (6)
  1. ACCUTANE [Suspect]
     Indication: ACNE
     Route: 048
     Dates: start: 19871021, end: 19871221
  2. ACCUTANE [Suspect]
     Route: 048
     Dates: start: 19880123, end: 19880227
  3. CECLOR [Concomitant]
  4. DARVOCET [Concomitant]
  5. ACCUTANE [Suspect]
     Route: 048
     Dates: start: 19871225, end: 19880113
  6. AUGMENTIN [Concomitant]

REACTIONS (5)
  - NEPHROLITHIASIS [None]
  - CROHN'S DISEASE [None]
  - ANXIETY [None]
  - PANIC ATTACK [None]
  - ANAL FISTULA [None]
